FAERS Safety Report 4341451-3 (Version None)
Quarter: 2004Q2

REPORT INFORMATION
  Report Type: 
  Country: None (occurrence: None)
  Receive Date: 20040419
  Receipt Date: 20040329
  Transmission Date: 20050107
  Serious: No
  Sender: FDA-Public Use
  Company Number: 7726

PATIENT
  Age: 44 Year
  Sex: Male

DRUGS (28)
  1. CYTARABINE                          (BATCH# M031976) [Suspect]
     Indication: LEUKAEMIA
     Dosage: 200 MG BID; IV
     Route: 042
     Dates: start: 20040323
  2. SODIUM CHLORIDE (BATCH# 04A16G50) [Suspect]
     Dosage: 100 ML BID; IV
     Route: 042
     Dates: start: 20040323
  3. ALLOPURINOL [Concomitant]
  4. PIPERACILLIN + TAZOBACTAM [Concomitant]
  5. .... [Concomitant]
  6. GENTAMICIN [Concomitant]
  7. FLUCONAZOLE [Concomitant]
  8. ACYCLOVIR [Concomitant]
  9. CHLORHEXIDINE GLUCONATE [Concomitant]
  10. METOCLOPRAMIDE [Concomitant]
  11. RETINOIC ACID [Concomitant]
  12. CIPROFLOXACIN [Concomitant]
  13. FUROSEMIDE [Concomitant]
  14. UROKINASE [Concomitant]
  15. ACETAMINOPHEN [Concomitant]
  16. HYDROCORTISONE [Concomitant]
  17. CHLORPHENAMINE [Concomitant]
  18. TEMAZEPAM [Concomitant]
  19. VANCOMYCIN [Concomitant]
  20. MEROPENEM [Concomitant]
  21. AMIKACIN [Concomitant]
  22. ..... [Concomitant]
  23. AMPHOTERICIN B [Concomitant]
  24. AMILORIDE [Concomitant]
  25. GRANISETRON [Concomitant]
  26. DEXAMETHASONE [Concomitant]
  27. ETOPOSIDE [Concomitant]
  28. DAUNORUBICIN HCL [Concomitant]

REACTIONS (6)
  - DYSPNOEA [None]
  - FLUSHING [None]
  - HYPERHIDROSIS [None]
  - INFUSION RELATED REACTION [None]
  - TACHYCARDIA [None]
  - THROAT TIGHTNESS [None]
